FAERS Safety Report 4788734-0 (Version None)
Quarter: 2005Q4

REPORT INFORMATION
  Report Type: 
  Country: None (occurrence: None)
  Receive Date: 20051003
  Receipt Date: 20050706
  Transmission Date: 20060501
  Serious: Yes (Other)
  Sender: FDA-Public Use
  Company Number: US-JNJFOC-20050400304

PATIENT
  Age: 9 Year
  Sex: Male
  Weight: 44.9061 kg

DRUGS (8)
  1. CONCERTA [Suspect]
     Indication: ATTENTION DEFICIT/HYPERACTIVITY DISORDER
     Dosage: 36 MG, 1 IN 1 DAY, ORAL
     Route: 048
     Dates: start: 20041201
  2. ATOMOXETINE (ALL OTHER THERAPEUTIC PRODUCTS) [Suspect]
     Indication: ATTENTION DEFICIT/HYPERACTIVITY DISORDER
     Dosage: 18 MG, 1 IN 1 DAY, ORAL
     Route: 048
     Dates: start: 20050317, end: 20050323
  3. ALBUTEROL [Concomitant]
  4. CROMOLYN SODIUM (CROMOGLICATE SODIUM) [Concomitant]
  5. BACTRIM [Concomitant]
  6. VIDEX EC [Concomitant]
  7. KALETRA [Concomitant]
  8. ZIAGEN [Concomitant]

REACTIONS (4)
  - ABDOMINAL PAIN UPPER [None]
  - CONVULSION [None]
  - DIZZINESS [None]
  - HYPERHIDROSIS [None]
